FAERS Safety Report 8417867-2 (Version None)
Quarter: 2012Q2

REPORT INFORMATION
  Report Type: 
  Country: None (occurrence: None)
  Receive Date: 20120607
  Receipt Date: 20120601
  Transmission Date: 20120825
  Serious: No
  Sender: FDA-Public Use
  Company Number: US-PFIZER INC-2012132599

PATIENT

DRUGS (2)
  1. PREMPRO [Suspect]
     Dosage: UNK
  2. PREMARIN [Suspect]
     Dosage: 0.3 MG, 1X/DAY

REACTIONS (3)
  - IMPAIRED WORK ABILITY [None]
  - ARTHRALGIA [None]
  - BACK PAIN [None]
